FAERS Safety Report 4867878-9 (Version None)
Quarter: 2005Q4

REPORT INFORMATION
  Report Type: 
  Country: None (occurrence: None)
  Receive Date: 20051227
  Receipt Date: 20051214
  Transmission Date: 20060501
  Serious: Yes (Other)
  Sender: FDA-Public Use
  Company Number: 8013668

PATIENT
  Age: 61 Year
  Sex: Male
  Weight: 86.5 kg

DRUGS (4)
  1. KEPPRA [Suspect]
     Indication: PARTIAL SEIZURES
     Dosage: 2 G 2/D PO
     Route: 048
     Dates: start: 20010501
  2. KEPPRA [Suspect]
     Indication: PARTIAL SEIZURES
     Dosage: 6 G /D PO
     Route: 048
  3. KEPPRA [Suspect]
     Indication: PARTIAL SEIZURES
     Dosage: 2 G  2/D PO
     Route: 048
     Dates: end: 20051201
  4. TOPIRAMAT [Concomitant]

REACTIONS (3)
  - DYSPNOEA EXERTIONAL [None]
  - ERECTILE DYSFUNCTION [None]
  - OEDEMA PERIPHERAL [None]
